FAERS Safety Report 6346654-4 (Version None)
Quarter: 2009Q3

REPORT INFORMATION
  Report Type: 
  Country: None (occurrence: None)
  Receive Date: 20090903
  Receipt Date: 20090825
  Transmission Date: 20100115
  Serious: Yes (Other)
  Sender: FDA-Public Use
  Company Number: CHNY2009JP03368

PATIENT
  Age: 70 Year
  Sex: Male

DRUGS (1)
  1. NICOTINE [Suspect]
     Indication: SMOKING CESSATION THERAPY
     Dosage: 14 MG, QD, TRANSDERMAL
     Route: 062
     Dates: start: 20090801, end: 20090824

REACTIONS (4)
  - APHAGIA [None]
  - FEAR [None]
  - NAUSEA [None]
  - SUICIDAL BEHAVIOUR [None]
